FAERS Safety Report 5431613-6 (Version None)
Quarter: 2007Q3

REPORT INFORMATION
  Report Type: 
  Country: None (occurrence: None)
  Receive Date: 20070830
  Receipt Date: 20070820
  Transmission Date: 20080115
  Serious: Yes (Hospitalization)
  Sender: FDA-Public Use
  Company Number: ES-ELI_LILLY_AND_COMPANY-ES200708003852

PATIENT
  Age: 38 Year
  Sex: Female

DRUGS (6)
  1. CYMBALTA [Suspect]
     Dosage: 60 MG, UNKNOWN
     Route: 065
  2. BUSCAPINA COMPOSITUM [Concomitant]
     Dosage: 20 UNK, UNKNOWN
     Route: 048
     Dates: start: 20061011, end: 20061113
  3. OMEPRAZOLE [Concomitant]
     Dosage: 20 MG, UNKNOWN
     Route: 048
     Dates: start: 20061022
  4. CIPROFLOXACINO [Concomitant]
     Dosage: 500 MG, UNKNOWN
     Route: 048
     Dates: start: 20061022, end: 20061027
  5. SEROQUEL [Concomitant]
     Dosage: 300 MG, UNKNOWN
     Route: 048
     Dates: start: 20060918
  6. ORFIDAL [Concomitant]
     Dosage: 1 MG, UNKNOWN
     Route: 048
     Dates: start: 20061024

REACTIONS (2)
  - ALANINE AMINOTRANSFERASE INCREASED [None]
  - ASPARTATE AMINOTRANSFERASE INCREASED [None]
